FAERS Safety Report 7722252-2 (Version None)
Quarter: 2011Q3

REPORT INFORMATION
  Report Type: 
  Country: None (occurrence: None)
  Receive Date: 20110831
  Receipt Date: 20110819
  Transmission Date: 20111222
  Serious: Yes (Other)
  Sender: FDA-Public Use
  Company Number: CA-ELI_LILLY_AND_COMPANY-CA201108006093

PATIENT
  Sex: Male

DRUGS (6)
  1. CLONAZEPAM [Concomitant]
  2. ZYPREXA [Suspect]
     Indication: SCHIZOPHRENIA
     Dosage: 10 MG, UNK
  3. ZYPREXA [Suspect]
     Dosage: 15 MG, UNK
  4. ZYPREXA [Suspect]
     Dosage: 7.5 MG, UNK
  5. ZYPREXA [Suspect]
     Dosage: 5 MG, UNK
  6. ZIPRASIDONE HYDROCHLORIDE [Concomitant]

REACTIONS (8)
  - DYSLIPIDAEMIA [None]
  - DIABETES MELLITUS [None]
  - WEIGHT INCREASED [None]
  - ACANTHOSIS NIGRICANS [None]
  - LYMPHOCYTE COUNT INCREASED [None]
  - SLEEP APNOEA SYNDROME [None]
  - HYPERTENSION [None]
  - HEPATITIS B [None]
